FAERS Safety Report 5899353-7 (Version None)
Quarter: 2008Q3

REPORT INFORMATION
  Report Type: 
  Country: None (occurrence: None)
  Receive Date: 20080924
  Receipt Date: 20080909
  Transmission Date: 20090109
  Serious: Yes (Other)
  Sender: FDA-Public Use
  Company Number: 2008S1015972

PATIENT
  Age: 22 Year
  Sex: Female

DRUGS (5)
  1. AMNESTEEM [Suspect]
     Dosage: 80 MG;DAILY;ORAL; 120 MG;EVERY OTHER DAY;ORAL
     Route: 048
     Dates: end: 20080623
  2. AMNESTEEM [Suspect]
     Dosage: 80 MG;DAILY;ORAL; 120 MG;EVERY OTHER DAY;ORAL
     Route: 048
     Dates: end: 20080623
  3. ACCUTANE [Suspect]
     Dosage: 80 MG;DAILY;ORAL;  120 MG;EVERY OTHER DAY;ORAL
     Dates: start: 20080124
  4. ACCUTANE [Suspect]
     Dosage: 80 MG;DAILY;ORAL;  120 MG;EVERY OTHER DAY;ORAL
     Dates: start: 20080124
  5. ORAL CONTRACEPTIVE NOS [Concomitant]

REACTIONS (2)
  - DRUG EXPOSURE DURING PREGNANCY [None]
  - PREGNANCY TEST POSITIVE [None]
